FAERS Safety Report 20472306 (Version 1)
Quarter: 2022Q1

REPORT INFORMATION
  Report Type: Report from Study
  Country: DE (occurrence: DE)
  Receive Date: 20220214
  Receipt Date: 20220214
  Transmission Date: 20220424
  Serious: Yes (Hospitalization)
  Sender: FDA-Public Use
  Company Number: DE-ABBVIE-22K-062-4275996-00

PATIENT
  Age: 49 Year
  Sex: Female

DRUGS (10)
  1. HUMIRA [Suspect]
     Active Substance: ADALIMUMAB
     Indication: Hidradenitis
     Route: 058
     Dates: start: 201710
  2. HUMIRA [Suspect]
     Active Substance: ADALIMUMAB
     Indication: Rheumatoid arthritis
  3. HUMIRA [Suspect]
     Active Substance: ADALIMUMAB
     Indication: Psoriatic arthropathy
  4. HUMIRA [Suspect]
     Active Substance: ADALIMUMAB
     Indication: Ankylosing spondylitis
  5. CELEBREX [Concomitant]
     Active Substance: CELECOXIB
     Indication: Rheumatoid arthritis
     Route: 048
  6. CELEBREX [Concomitant]
     Active Substance: CELECOXIB
     Indication: Psoriatic arthropathy
  7. CELEBREX [Concomitant]
     Active Substance: CELECOXIB
     Indication: Ankylosing spondylitis
  8. ARCOXIA [Concomitant]
     Active Substance: ETORICOXIB
     Indication: Rheumatoid arthritis
     Route: 048
  9. ARCOXIA [Concomitant]
     Active Substance: ETORICOXIB
     Indication: Psoriatic arthropathy
  10. ARCOXIA [Concomitant]
     Active Substance: ETORICOXIB
     Indication: Ankylosing spondylitis

REACTIONS (6)
  - Intestinal cyst [Recovered/Resolved]
  - Anaesthetic complication [Unknown]
  - Dermatitis contact [Not Recovered/Not Resolved]
  - Hypoaesthesia [Not Recovered/Not Resolved]
  - Haematochezia [Recovered/Resolved]
  - Therapeutic product effect decreased [Not Recovered/Not Resolved]

NARRATIVE: CASE EVENT DATE: 20171001
